FAERS Safety Report 13525767 (Version 1)
Quarter: 2017Q2

REPORT INFORMATION
  Report Type: Spontaneous
  Country: CN (occurrence: CN)
  Receive Date: 20170509
  Receipt Date: 20170509
  Transmission Date: 20170830
  Serious: Yes (Other)
  Sender: FDA-Public Use
  Company Number: CN-BAXTER-2017BAX019238

PATIENT
  Age: 50 Year
  Sex: Female
  Weight: 44 kg

DRUGS (3)
  1. 5% GLUCOSE  INJECTION [Suspect]
     Active Substance: DEXTROSE
     Indication: HAEMORRHAGE
     Route: 041
     Dates: start: 20170118, end: 20170118
  2. P-AMINOMETHYLBENZOIC ACID [Suspect]
     Active Substance: AMINOMETHYLBENZOIC ACID
     Indication: HAEMORRHAGE
     Route: 041
     Dates: start: 20170118, end: 20170118
  3. ETAMSYLATE [Suspect]
     Active Substance: ETHAMSYLATE
     Indication: HAEMORRHAGE
     Route: 041
     Dates: start: 20170118, end: 20170118

REACTIONS (3)
  - Temperature intolerance [Recovered/Resolved]
  - Pyrexia [Recovered/Resolved]
  - Tremor [Recovering/Resolving]

NARRATIVE: CASE EVENT DATE: 20170118
